FAERS Safety Report 5230564-X (Version None)
Quarter: 2007Q1

REPORT INFORMATION
  Report Type: 
  Country: None (occurrence: None)
  Receive Date: 20070202
  Receipt Date: 20070123
  Transmission Date: 20070707
  Serious: Yes (Hospitalization)
  Sender: FDA-Public Use
  Company Number: 232281

PATIENT
  Sex: Female

DRUGS (4)
  1. XOLAIR [Suspect]
     Indication: ASTHMA
     Dosage: 300 MG, 1 MONTH
     Dates: start: 20060501
  2. SYMBICORT [Concomitant]
  3. SPIRIVA [Concomitant]
  4. VENTOLIN (ALBUTEROL/ALBUTEROL SULFATE) [Concomitant]

REACTIONS (3)
  - ASTHMA [None]
  - LOWER RESPIRATORY TRACT INFECTION [None]
  - TREATMENT NONCOMPLIANCE [None]
